FAERS Safety Report 15177919 (Version 1)
Quarter: 2018Q3

REPORT INFORMATION
  Report Type: Spontaneous
  Country: IT (occurrence: IT)
  Receive Date: 20180720
  Receipt Date: 20180720
  Transmission Date: 20181010
  Serious: Yes (Hospitalization)
  Sender: FDA-Public Use
  Company Number: PHHY2018IT043200

PATIENT
  Age: 58 Year
  Sex: Male

DRUGS (1)
  1. ACETYLSALICYLIC ACID [Suspect]
     Active Substance: ASPIRIN
     Indication: PRODUCT USED FOR UNKNOWN INDICATION
     Dosage: 1500 MG, TOTAL
     Route: 048
     Dates: start: 20180323, end: 20180323

REACTIONS (5)
  - Drug hypersensitivity [Recovering/Resolving]
  - Erythema [Recovering/Resolving]
  - Tongue oedema [Recovering/Resolving]
  - Eyelid oedema [Recovering/Resolving]
  - Pharyngeal oedema [Recovering/Resolving]

NARRATIVE: CASE EVENT DATE: 20180323
